FAERS Safety Report 7496656-X (Version None)
Quarter: 2011Q2

REPORT INFORMATION
  Report Type: 
  Country: None (occurrence: None)
  Receive Date: 20110523
  Receipt Date: 20110516
  Transmission Date: 20111010
  Serious: Yes (Hospitalization)
  Sender: FDA-Public Use
  Company Number: A0927527A

PATIENT
  Age: 65 Year
  Sex: Female

DRUGS (3)
  1. ADVAIR DISKUS 100/50 [Suspect]
     Indication: CHRONIC OBSTRUCTIVE PULMONARY DISEASE
     Dosage: 1PUFF TWICE PER DAY
     Route: 055
     Dates: start: 20030101
  2. SPIRIVA [Concomitant]
     Route: 055
  3. BLOOD PRESSURE MEDICATION [Concomitant]

REACTIONS (5)
  - WEIGHT INCREASED [None]
  - BLOOD CALCIUM INCREASED [None]
  - PNEUMONIA [None]
  - FATIGUE [None]
  - PARATHYROID DISORDER [None]
